FAERS Safety Report 22324105 (Version 1)
Quarter: 2023Q2

REPORT INFORMATION
  Report Type: Spontaneous
  Country: CA (occurrence: None)
  Receive Date: 20230513
  Receipt Date: 20230513
  Transmission Date: 20230722
  Serious: No
  Sender: FDA-Public Use
  Company Number: None

PATIENT
  Age: 29 Year
  Sex: Female
  Weight: 86.64 kg

DRUGS (2)
  1. NEXPLANON [Suspect]
     Active Substance: ETONOGESTREL
     Dates: start: 20221022
  2. FLUOXETINE [Concomitant]
     Active Substance: FLUOXETINE HYDROCHLORIDE

REACTIONS (8)
  - Feeling abnormal [None]
  - Emotional disorder [None]
  - Social avoidant behaviour [None]
  - Fatigue [None]
  - Depression [None]
  - Anxiety [None]
  - Decreased interest [None]
  - Weight increased [None]
